FAERS Safety Report 5726724-1 (Version None)
Quarter: 2008Q2

REPORT INFORMATION
  Report Type: 
  Country: None (occurrence: None)
  Receive Date: 20080502
  Receipt Date: 20080425
  Transmission Date: 20081010
  Serious: Yes (Hospitalization)
  Sender: FDA-Public Use
  Company Number: JP-BRISTOL-MYERS SQUIBB COMPANY-14173355

PATIENT
  Age: 38 Year
  Sex: Male

DRUGS (2)
  1. EFAVIRENZ [Suspect]
     Indication: ANTIRETROVIRAL THERAPY
     Dosage: INTERRUPTED ON 14MAR08 (579 DAYS).RESTARTED ON 21MAR08.
     Route: 048
     Dates: start: 20060814
  2. EPZICOM [Suspect]
     Indication: ANTIRETROVIRAL THERAPY
     Dosage: INTERRUPTED ON 14-MAR-2008 (579 DAYS)
     Route: 048
     Dates: start: 20060814

REACTIONS (1)
  - RENAL FAILURE CHRONIC [None]
